FAERS Safety Report 16014487 (Version 1)
Quarter: 2019Q1

REPORT INFORMATION
  Report Type: Not Available
  Country: DO (occurrence: DO)
  Receive Date: 20190227
  Receipt Date: 20190227
  Transmission Date: 20190418
  Serious: Yes (Death)
  Sender: FDA-Public Use
  Company Number: DO-ANIPHARMA-2019-DO-000001

PATIENT
  Sex: Male

DRUGS (1)
  1. ATACAND [Suspect]
     Active Substance: CANDESARTAN CILEXETIL
     Indication: PRODUCT USED FOR UNKNOWN INDICATION
     Dosage: UNK
     Route: 048

REACTIONS (1)
  - Death [Fatal]
